FAERS Safety Report 9418151 (Version 1)
Quarter: 2013Q3

REPORT INFORMATION
  Report Type: Report from Study
  Country: CO (occurrence: CO)
  Receive Date: 20130724
  Receipt Date: 20130724
  Transmission Date: 20140515
  Serious: Yes (Other)
  Sender: FDA-Public Use
  Company Number: CO-ABBOTT-13P-036-1123579-00

PATIENT
  Age: 28 Year
  Sex: Female
  Weight: 80 kg

DRUGS (1)
  1. HUMIRA [Suspect]
     Indication: ANKYLOSING SPONDYLITIS
     Route: 058
     Dates: start: 20130528

REACTIONS (3)
  - Agraphia [Recovered/Resolved]
  - Tachycardia [Recovered/Resolved]
  - Pain [Recovered/Resolved]
